FAERS Safety Report 5372394-4 (Version None)
Quarter: 2007Q2

REPORT INFORMATION
  Report Type: 
  Country: None (occurrence: None)
  Receive Date: 20070627
  Receipt Date: 20070420
  Transmission Date: 20071010
  Serious: Yes (Other)
  Sender: FDA-Public Use
  Company Number: US-BRISTOL-MYERS SQUIBB COMPANY-13754783

PATIENT
  Age: 30 Year
  Sex: Female
  Weight: 44 kg

DRUGS (1)
  1. SPRYCEL [Suspect]

REACTIONS (1)
  - DERMATITIS CONTACT [None]
